FAERS Safety Report 19146318 (Version 1)
Quarter: 2021Q2

REPORT INFORMATION
  Report Type: Spontaneous
  Country: FR (occurrence: FR)
  Receive Date: 20210416
  Receipt Date: 20210416
  Transmission Date: 20210717
  Serious: Yes (Death)
  Sender: FDA-Public Use
  Company Number: FR-PFIZER INC-2021376873

PATIENT
  Age: 67 Year
  Sex: Male

DRUGS (4)
  1. INLYTA [Suspect]
     Active Substance: AXITINIB
     Indication: SARCOMATOID CARCINOMA
     Dosage: 10 MG, 2X/DAY
     Dates: start: 20201115
  2. PEMBROLIZUMAB. [Suspect]
     Active Substance: PEMBROLIZUMAB
     Indication: SARCOMATOID CARCINOMA
     Dosage: 400 MG, WEEKLY
     Dates: start: 20201115
  3. PEMBROLIZUMAB. [Suspect]
     Active Substance: PEMBROLIZUMAB
     Dosage: 400 MG EVERY 2 WEEKS
  4. INLYTA [Suspect]
     Active Substance: AXITINIB
     Dosage: 5 MG, 2X/DAY

REACTIONS (2)
  - Death [Fatal]
  - Off label use [Unknown]
